FAERS Safety Report 23600422 (Version 2)
Quarter: 2024Q2

REPORT INFORMATION
  Report Type: Spontaneous
  Country: US (occurrence: US)
  Receive Date: 20240306
  Receipt Date: 20240408
  Transmission Date: 20240716
  Serious: No
  Sender: FDA-Public Use
  Company Number: US-PFIZER INC-202400039645

PATIENT
  Age: 24 Year
  Sex: Female
  Weight: 70.31 kg

DRUGS (1)
  1. DEPO-PROVERA [Suspect]
     Active Substance: MEDROXYPROGESTERONE ACETATE
     Indication: Endometriosis
     Dosage: 104 MILLIGRAMS PER 0.65 MILLILITERS

REACTIONS (3)
  - Incorrect dose administered by device [Unknown]
  - Product administration error [Unknown]
  - Device occlusion [Unknown]

NARRATIVE: CASE EVENT DATE: 20240201
